FAERS Safety Report 11658502 (Version 6)
Quarter: 2019Q3

REPORT INFORMATION
  Report Type: Report from Study
  Country: NL (occurrence: NL)
  Receive Date: 20151026
  Receipt Date: 20190920
  Transmission Date: 20191004
  Serious: Yes (Hospitalization)
  Sender: FDA-Public Use
  Company Number: NL-ROCHE-1646050

PATIENT
  Age: 53 Year
  Sex: Female

DRUGS (5)
  1. SOVALDI [Suspect]
     Active Substance: SOFOSBUVIR
     Indication: HEPATITIS C
     Route: 048
  2. DAKLINZA [Suspect]
     Active Substance: DACLATASVIR
     Route: 048
     Dates: start: 20150922
  3. COPEGUS [Suspect]
     Active Substance: RIBAVIRIN
     Indication: HEPATITIS C
     Route: 048
  4. DAKLINZA [Suspect]
     Active Substance: DACLATASVIR
     Indication: HEPATITIS C
     Route: 048
  5. METHADONE [Concomitant]
     Active Substance: METHADONE HYDROCHLORIDE
     Route: 042

REACTIONS (6)
  - Mood altered [Not Recovered/Not Resolved]
  - Personality disorder [Not Recovered/Not Resolved]
  - Mental disorder [Unknown]
  - Anxiety [Not Recovered/Not Resolved]
  - Stress [Unknown]
  - Depression [Not Recovered/Not Resolved]

NARRATIVE: CASE EVENT DATE: 20151003
